FAERS Safety Report 17721802 (Version 2)
Quarter: 2020Q3

REPORT INFORMATION
  Report Type: Spontaneous
  Country: GB (occurrence: GB)
  Receive Date: 20200429
  Receipt Date: 20200723
  Transmission Date: 20201102
  Serious: Yes (Other)
  Sender: FDA-Public Use
  Company Number: GB-BIOGEN-2018BI00521290

PATIENT
  Age: 38 Year
  Sex: Male

DRUGS (5)
  1. AVONEX PEN [Suspect]
     Active Substance: INTERFERON BETA-1A
  2. AVONEX PEN [Suspect]
     Active Substance: INTERFERON BETA-1A
  3. AVONEX PEN [Suspect]
     Active Substance: INTERFERON BETA-1A
     Route: 030
  4. AVONEX PEN [Suspect]
     Active Substance: INTERFERON BETA-1A
     Indication: RELAPSING-REMITTING MULTIPLE SCLEROSIS
     Route: 050
     Dates: start: 20180122
  5. LEVOTHYROXINE. [Concomitant]
     Active Substance: LEVOTHYROXINE
     Indication: PRODUCT USED FOR UNKNOWN INDICATION
     Route: 065

REACTIONS (13)
  - Alanine aminotransferase increased [Unknown]
  - Device difficult to use [Unknown]
  - Injury associated with device [Recovered/Resolved]
  - Accidental underdose [Recovered/Resolved]
  - Dizziness [Not Recovered/Not Resolved]
  - Eye pain [Recovered/Resolved]
  - Sneezing [Recovered/Resolved]
  - Haematospermia [Not Recovered/Not Resolved]
  - Feeling abnormal [Recovered/Resolved]
  - Exposure via skin contact [Recovered/Resolved]
  - Influenza like illness [Recovered/Resolved]
  - Coronavirus infection [Unknown]
  - Serum ferritin increased [Unknown]

NARRATIVE: CASE EVENT DATE: 201802
